FAERS Safety Report 14600034 (Version 2)
Quarter: 2018Q3

REPORT INFORMATION
  Report Type: Spontaneous
  Country: DE (occurrence: DE)
  Receive Date: 20180305
  Receipt Date: 20180815
  Transmission Date: 20181010
  Serious: Yes (Other)
  Sender: FDA-Public Use
  Company Number: DE-SA-2018SA061342

PATIENT
  Age: 78 Year
  Sex: Male

DRUGS (2)
  1. CLOPIDOGREL BISULFATE. [Suspect]
     Active Substance: CLOPIDOGREL BISULFATE
     Dosage: 75 MG,QD
     Route: 065
  2. APIXABAN [Suspect]
     Active Substance: APIXABAN
     Indication: BACK PAIN
     Dosage: 2.5 MG,Q12H
     Route: 065

REACTIONS (3)
  - Metallosis of globe [Recovered/Resolved]
  - Back pain [Recovered/Resolved]
  - Spinal subarachnoid haemorrhage [Recovered/Resolved]
